FAERS Safety Report 7449627-3 (Version None)
Quarter: 2011Q2

REPORT INFORMATION
  Report Type: 
  Country: None (occurrence: None)
  Receive Date: 20110421
  Receipt Date: 20110414
  Transmission Date: 20111010
  Serious: Yes (Other)
  Sender: FDA-Public Use
  Company Number: 2011SP003073

PATIENT
  Age: 30 Year
  Sex: Female
  Weight: 47 kg

DRUGS (6)
  1. DESOGESTREL AND ETHINYL ESTRADIOL [Suspect]
     Indication: CONTRACEPTION
     Dosage: PO
     Dates: start: 20040101, end: 20101201
  2. DESOGESTREL AND ETHINYL ESTRADIOL [Suspect]
     Indication: POLYCYSTIC OVARIES
     Dosage: PO
     Dates: start: 20040101, end: 20101201
  3. DESOGESTREL AND ETHINYL ESTRADIOL [Suspect]
     Indication: ACNE
     Dosage: PO
     Dates: start: 20040101, end: 20101201
  4. DESOGESTREL AND ETHINYL ESTRADIOL [Suspect]
     Indication: CONTRACEPTION
     Dosage: PO
     Dates: start: 20110101
  5. DESOGESTREL AND ETHINYL ESTRADIOL [Suspect]
     Indication: POLYCYSTIC OVARIES
     Dosage: PO
     Dates: start: 20110101
  6. DESOGESTREL AND ETHINYL ESTRADIOL [Suspect]
     Indication: ACNE
     Dosage: PO
     Dates: start: 20110101

REACTIONS (4)
  - INAPPROPRIATE SCHEDULE OF DRUG ADMINISTRATION [None]
  - BREAST PAIN [None]
  - VOMITING [None]
  - BREAST MASS [None]
